FAERS Safety Report 16945971 (Version 1)
Quarter: 2019Q4

REPORT INFORMATION
  Report Type: Spontaneous
  Country: US (occurrence: US)
  Receive Date: 20191021
  Receipt Date: 20191021
  Transmission Date: 20200122
  Serious: No
  Sender: FDA-Public Use
  Company Number: None

PATIENT
  Age: 44 Year
  Sex: Female

DRUGS (6)
  1. TURMERIC [Concomitant]
     Active Substance: HERBALS\TURMERIC
  2. MAGNESIUM MALATE. [Concomitant]
     Active Substance: MAGNESIUM MALATE
  3. 5HTP [Concomitant]
  4. VITAMIN D [Concomitant]
     Active Substance: VITAMIN D NOS
  5. MELATONIN [Concomitant]
     Active Substance: MELATONIN
  6. MYRBETRIQ [Suspect]
     Active Substance: MIRABEGRON
     Indication: HYPERTONIC BLADDER
     Dosage: ?          QUANTITY:1 TABLET(S);?
     Route: 048

REACTIONS (9)
  - Headache [None]
  - Dizziness [None]
  - Dyspepsia [None]
  - Dry mouth [None]
  - Constipation [None]
  - Dysphagia [None]
  - Foreign body in respiratory tract [None]
  - Sensory disturbance [None]
  - Palpitations [None]

NARRATIVE: CASE EVENT DATE: 20191020
